FAERS Safety Report 6239576-0 (Version None)
Quarter: 2009Q2

REPORT INFORMATION
  Report Type: 
  Country: None (occurrence: None)
  Receive Date: 20090619
  Receipt Date: 20090616
  Transmission Date: 20091009
  Serious: Yes (Hospitalization)
  Sender: FDA-Public Use
  Company Number: LTI2009A00176

PATIENT
  Age: 73 Year
  Sex: Female

DRUGS (4)
  1. ACTOS [Suspect]
     Indication: TYPE 2 DIABETES MELLITUS
     Dosage: 15 MG (15 MG, 1 IN 1 D), ORAL
     Route: 048
  2. HYTACAND (HYDROCHLOROTHIAZIDE, CANDESARTAN CILEXETIL) [Suspect]
     Indication: HYPERTENSION
     Dosage: ORAL
     Route: 048
     Dates: end: 20090512
  3. MEDIATOR (BENFLUOREX HYDROCHLORIDE) [Suspect]
     Indication: TYPE 2 DIABETES MELLITUS
     Dosage: 90 MG (90 MG, 1 IN 1 D) ORAL
     Route: 048
  4. DIAMICRON (GLICLAZIDE) [Suspect]
     Indication: TYPE 2 DIABETES MELLITUS
     Dosage: 90 MG (90 MG, 1 IN 1 D) ORAL
     Route: 048

REACTIONS (4)
  - BLOOD PRESSURE SYSTOLIC INCREASED [None]
  - DIZZINESS POSTURAL [None]
  - HEADACHE [None]
  - HYPONATRAEMIA [None]
